FAERS Safety Report 9292203 (Version 1)
Quarter: 2012Q4

REPORT INFORMATION
  Report Type: Spontaneous
  Country: US (occurrence: None)
  Receive Date: 20121011
  Receipt Date: 20121011
  Transmission Date: 20130627
  Serious: Yes (Hospitalization, Other)
  Sender: FDA-Public Use
  Company Number: ADR-2010-9774

PATIENT
  Age: 54 Year
  Sex: Female

DRUGS (1)
  1. LIORESAL INTRATHECAL(BACLOFEN INJECTION) 2000 MCG/ML [Suspect]
     Indication: SPASTICITY

REACTIONS (7)
  - Muscle spasticity [None]
  - Back pain [None]
  - Implant site effusion [None]
  - Device connection issue [None]
  - Drug effect decreased [None]
  - Device leakage [None]
  - Underdose [None]
